FAERS Safety Report 6841662-9 (Version None)
Quarter: 2010Q3

REPORT INFORMATION
  Report Type: 
  Country: None (occurrence: None)
  Receive Date: 20100714
  Receipt Date: 20071210
  Transmission Date: 20110219
  Serious: No
  Sender: FDA-Public Use
  Company Number: US-PFIZER INC-2007058240

PATIENT
  Sex: Male
  Weight: 113.4 kg

DRUGS (9)
  1. CHANTIX [Suspect]
     Indication: SMOKING CESSATION THERAPY
     Dates: start: 20071204
  2. LEXAPRO [Concomitant]
  3. DEPAKOTE [Concomitant]
     Indication: OBSESSIVE-COMPULSIVE DISORDER
  4. LOTREL [Concomitant]
     Indication: HYPERTENSION
  5. ATENOLOL [Concomitant]
     Indication: HYPERTENSION
  6. LORAZEPAM [Concomitant]
  7. GEODON [Concomitant]
     Indication: ANXIETY DISORDER
  8. PROTONIX [Concomitant]
  9. CLONAZEPAM [Concomitant]

REACTIONS (5)
  - ABDOMINAL PAIN UPPER [None]
  - ABNORMAL DREAMS [None]
  - IRRITABLE BOWEL SYNDROME [None]
  - NAUSEA [None]
  - VOMITING [None]
